FAERS Safety Report 15811094 (Version 2)
Quarter: 2025Q3

REPORT INFORMATION
  Report Type: Spontaneous
  Country: EU (occurrence: EU)
  Receive Date: 20190111
  Receipt Date: 20250925
  Transmission Date: 20251020
  Serious: Yes (Hospitalization, Other)
  Sender: AUROBINDO
  Company Number: EU-AUROBINDO-AUR-APL-2019-000052

PATIENT
  Age: 44 Year
  Sex: Male

DRUGS (19)
  1. LAMIVUDINE [Suspect]
     Active Substance: LAMIVUDINE
     Indication: HIV infection
     Route: 065
  2. COPEGUS [Suspect]
     Active Substance: RIBAVIRIN
     Indication: Hepatitis C
     Route: 048
     Dates: start: 20150603, end: 20151111
  3. COPEGUS [Suspect]
     Active Substance: RIBAVIRIN
     Indication: Product used for unknown indication
     Route: 065
  4. DAKLINZA [Suspect]
     Active Substance: DACLATASVIR
     Indication: Hepatitis C
     Route: 048
     Dates: start: 20150603, end: 20150722
  5. REYATAZ [Suspect]
     Active Substance: ATAZANAVIR SULFATE
     Indication: Acquired immunodeficiency syndrome
     Route: 048
     Dates: start: 20091007, end: 20150722
  6. REYATAZ [Suspect]
     Active Substance: ATAZANAVIR SULFATE
     Indication: HIV infection
     Route: 048
     Dates: start: 20091007, end: 20150722
  7. SOVALDI [Suspect]
     Active Substance: SOFOSBUVIR
     Indication: Product used for unknown indication
     Route: 065
  8. SOVALDI [Suspect]
     Active Substance: SOFOSBUVIR
     Indication: Hepatitis C
     Route: 048
     Dates: start: 20150603, end: 20151111
  9. KIVEXA [Suspect]
     Active Substance: ABACAVIR SULFATE\LAMIVUDINE
     Indication: HIV infection
     Route: 048
     Dates: start: 20120621
  10. NORVIR [Suspect]
     Active Substance: RITONAVIR
     Indication: HIV infection
     Route: 048
     Dates: start: 20091007, end: 20150722
  11. DAKLINZA [Concomitant]
     Active Substance: DACLATASVIR
     Indication: Hepatitis C
     Route: 048
     Dates: start: 20150603, end: 20150722
  12. DAKLINZA [Concomitant]
     Active Substance: DACLATASVIR
  13. CHOLECALCIFEROL [Concomitant]
     Active Substance: CHOLECALCIFEROL
     Indication: Product used for unknown indication
     Route: 048
     Dates: start: 20120522
  14. Laevolac eps [Concomitant]
     Indication: Product used for unknown indication
     Route: 051
     Dates: start: 20150107
  15. METHADONE HYDROCHLORIDE [Concomitant]
     Active Substance: METHADONE HYDROCHLORIDE
     Indication: Drug dependence
     Route: 048
     Dates: start: 20090803
  16. EPOETIN BETA [Concomitant]
     Active Substance: ERYTHROPOIETIN
     Indication: Anaemia
     Route: 065
     Dates: start: 20150708, end: 20151110
  17. DOMPERIDONE [Concomitant]
     Active Substance: DOMPERIDONE
     Indication: Nausea
     Route: 048
     Dates: start: 20110706, end: 20150408
  18. TALOFEN [Concomitant]
     Active Substance: PROMAZINE HYDROCHLORIDE
     Indication: Product used for unknown indication
     Route: 048
     Dates: start: 20130513
  19. TRUVADA [Concomitant]
     Active Substance: EMTRICITABINE\TENOFOVIR DISOPROXIL FUMARATE
     Indication: HIV infection
     Route: 048
     Dates: start: 20091007, end: 20120621

REACTIONS (6)
  - Nephrolithiasis [Recovered/Resolved]
  - Biliary colic [Unknown]
  - Drug interaction [Unknown]
  - Haemoglobin decreased [Not Recovered/Not Resolved]
  - Cholelithiasis [Recovered/Resolved]
  - Hyperbilirubinaemia [Recovering/Resolving]

NARRATIVE: CASE EVENT DATE: 20150722
